FAERS Safety Report 24193472 (Version 1)
Quarter: 2024Q3

REPORT INFORMATION
  Report Type: Spontaneous
  Country: HR (occurrence: HR)
  Receive Date: 20240809
  Receipt Date: 20240809
  Transmission Date: 20241017
  Serious: No
  Sender: ALKEM
  Company Number: HR-ALKEM LABORATORIES LIMITED-HR-ALKEM-2024-16729

PATIENT
  Age: 62 Year
  Sex: Female

DRUGS (2)
  1. DICLOFENAC [Suspect]
     Active Substance: DICLOFENAC
     Indication: Rheumatoid arthritis
     Dosage: UNK, BID, (GEL)
     Route: 061
  2. METHOTREXATE [Concomitant]
     Active Substance: METHOTREXATE
     Indication: Rheumatoid arthritis
     Dosage: 10 MILLIGRAM, (PER WEEK)
     Route: 048

REACTIONS (1)
  - Dermatitis contact [Recovered/Resolved]
